FAERS Safety Report 4460354-7 (Version None)
Quarter: 2004Q3

REPORT INFORMATION
  Report Type: 
  Country: None (occurrence: None)
  Receive Date: 20040928
  Receipt Date: 20040402
  Transmission Date: 20050211
  Serious: No
  Sender: FDA-Public Use
  Company Number: US-GLAXOSMITHKLINE-A0505667A

PATIENT
  Age: 72 Year
  Sex: Female

DRUGS (8)
  1. SEREVENT [Suspect]
     Dosage: 1PUFF TWICE PER DAY
     Route: 055
     Dates: start: 20030101
  2. PROVENTIL [Concomitant]
  3. ATROVENT [Concomitant]
  4. AVANDAMET [Concomitant]
  5. FLOVENT [Concomitant]
  6. HYZAAR [Concomitant]
  7. SYNTHROID [Concomitant]
  8. ZOLOFT [Concomitant]

REACTIONS (2)
  - DRUG INEFFECTIVE [None]
  - PHARMACEUTICAL PRODUCT COMPLAINT [None]
